FAERS Safety Report 8425628-3 (Version None)
Quarter: 2012Q2

REPORT INFORMATION
  Report Type: 
  Country: None (occurrence: None)
  Receive Date: 20120611
  Receipt Date: 20120604
  Transmission Date: 20120825
  Serious: Yes (Other)
  Sender: FDA-Public Use
  Company Number: PHEH2012US011332

PATIENT
  Sex: Female

DRUGS (7)
  1. VITAMIN B COMPLEX CAP [Concomitant]
     Dosage: 1 DF, QD
     Route: 048
  2. ENSURE [Concomitant]
     Dosage: 1 UKN, QD
  3. MULTI-VITAMINS [Concomitant]
     Dosage: 1 DF, QD
     Route: 048
  4. TEGRETOL [Suspect]
  5. CALCIUM CARBONATE [Concomitant]
     Dosage: 1 DF, BID
     Route: 048
  6. FOLIC ACID [Concomitant]
     Dosage: 1 DF, QD
     Route: 048
  7. ASPIRIN [Concomitant]
     Dosage: 1 DF, QD
     Route: 048

REACTIONS (1)
  - TOXICITY TO VARIOUS AGENTS [None]
